FAERS Safety Report 4559814-X (Version None)
Quarter: 2005Q1

REPORT INFORMATION
  Report Type: 
  Country: None (occurrence: None)
  Receive Date: 20050107
  Receipt Date: 20040910
  Transmission Date: 20050727
  Serious: Yes (Hospitalization)
  Sender: FDA-Public Use
  Company Number: 233864K04USA

PATIENT
  Age: 33 Year
  Weight: 73.9363 kg

DRUGS (4)
  1. REBIF [Suspect]
     Indication: MULTIPLE SCLEROSIS
     Dates: start: 20021127
  2. BACLOFEN [Concomitant]
  3. NEURONTIN [Concomitant]
  4. DEMADEX [Concomitant]

REACTIONS (2)
  - MULTIPLE SCLEROSIS [None]
  - WEIGHT INCREASED [None]
